FAERS Safety Report 9423550 (Version 1)
Quarter: 2013Q3

REPORT INFORMATION
  Report Type: Spontaneous
  Country: US (occurrence: US)
  Receive Date: 20130726
  Receipt Date: 20130726
  Transmission Date: 20140515
  Serious: Yes (Other)
  Sender: FDA-Public Use
  Company Number: US-GLAXOSMITHKLINE-A1034232A

PATIENT
  Age: 26 Year
  Sex: Male

DRUGS (5)
  1. LAMICTAL [Suspect]
     Indication: EPILEPSY
     Dosage: 200MG TWICE PER DAY
     Route: 048
     Dates: start: 201302
  2. VALIUM [Concomitant]
  3. CLONAZEPAM [Concomitant]
  4. VIMPAT [Concomitant]
  5. GABAPENTIN [Concomitant]

REACTIONS (4)
  - Convulsion [Not Recovered/Not Resolved]
  - Cerebrovascular accident [Not Recovered/Not Resolved]
  - Respiratory arrest [Unknown]
  - Depressed level of consciousness [Unknown]
